FAERS Safety Report 12385347 (Version 1)
Quarter: 2016Q2

REPORT INFORMATION
  Report Type: Report from Study
  Country: CA (occurrence: CA)
  Receive Date: 20160519
  Receipt Date: 20160519
  Transmission Date: 20160815
  Serious: Yes (Other)
  Sender: FDA-Public Use
  Company Number: CA-JNJFOC-20160511694

PATIENT
  Age: 11 Year
  Sex: Male
  Weight: 102 kg

DRUGS (3)
  1. REMICADE [Suspect]
     Active Substance: INFLIXIMAB
     Indication: COLITIS ULCERATIVE
     Route: 042
     Dates: start: 20160510
  2. REMICADE [Suspect]
     Active Substance: INFLIXIMAB
     Indication: COLITIS ULCERATIVE
     Dosage: DURATION OF TREATMENT=3.5 HOURS??FREQUENCY: ONCE IN 6-8 WEEKS
     Route: 042
     Dates: start: 201005
  3. REMICADE [Suspect]
     Active Substance: INFLIXIMAB
     Indication: COLITIS ULCERATIVE
     Route: 042
     Dates: start: 20110504

REACTIONS (5)
  - Product use issue [Unknown]
  - General physical health deterioration [Unknown]
  - Musculoskeletal chest pain [Unknown]
  - Off label use [Unknown]
  - Infusion site pain [Unknown]

NARRATIVE: CASE EVENT DATE: 201005
